FAERS Safety Report 17443886 (Version 1)
Quarter: 2020Q1

REPORT INFORMATION
  Report Type: Report from Study
  Country: CO (occurrence: CO)
  Receive Date: 20200221
  Receipt Date: 20200221
  Transmission Date: 20200409
  Serious: Yes (Other)
  Sender: FDA-Public Use
  Company Number: CO-ROCHE-2478485

PATIENT
  Sex: Male

DRUGS (3)
  1. PREDNISOLONE. [Concomitant]
     Active Substance: PREDNISOLONE
  2. CELLCEPT [Suspect]
     Active Substance: MYCOPHENOLATE MOFETIL\MYCOPHENOLATE MOFETIL HYDROCHLORIDE
     Indication: PRODUCT USED FOR UNKNOWN INDICATION
     Route: 048
  3. SIROLIMUS. [Concomitant]
     Active Substance: SIROLIMUS

REACTIONS (9)
  - Balance disorder [Unknown]
  - Ill-defined disorder [Unknown]
  - Hypoaesthesia [Unknown]
  - Hypertensive crisis [Unknown]
  - Haemoglobin decreased [Unknown]
  - Vertigo [Unknown]
  - Renal failure [Unknown]
  - Blood creatinine abnormal [Unknown]
  - Paraesthesia [Unknown]
